FAERS Safety Report 15122329 (Version 1)
Quarter: 2018Q3

REPORT INFORMATION
  Report Type: Spontaneous
  Country: FI (occurrence: FI)
  Receive Date: 20180709
  Receipt Date: 20180709
  Transmission Date: 20181010
  Serious: Yes (Other)
  Sender: FDA-Public Use
  Company Number: FI-009507513-1807FIN000041

PATIENT
  Age: 80 Year
  Sex: Male

DRUGS (2)
  1. EZETROL [Suspect]
     Active Substance: EZETIMIBE
     Indication: LIPID METABOLISM DISORDER
     Dosage: 10 MG, ONE TABLET ONCE A DAY
     Route: 048
     Dates: start: 2015
  2. PRIMASPAN [Concomitant]
     Active Substance: ASPIRIN
     Dosage: 100 MG, ONE TABLET ONCE A DAY
     Route: 048

REACTIONS (8)
  - Rash papular [Unknown]
  - Dizziness [Unknown]
  - Haematoma [Unknown]
  - Muscle spasms [Unknown]
  - Cardiac pacemaker insertion [Unknown]
  - Depressed mood [Unknown]
  - Arthralgia [Unknown]
  - Fatigue [Unknown]

NARRATIVE: CASE EVENT DATE: 2016
